FAERS Safety Report 22869015 (Version 2)
Quarter: 2023Q4

REPORT INFORMATION
  Report Type: Spontaneous
  Country: US (occurrence: US)
  Receive Date: 20230825
  Receipt Date: 20231124
  Transmission Date: 20240110
  Serious: No
  Sender: FDA-Public Use
  Company Number: US-Blueprint Medicines Corporation-1387

PATIENT
  Sex: Female

DRUGS (1)
  1. AYVAKIT [Suspect]
     Active Substance: AVAPRITINIB
     Indication: Systemic mastocytosis
     Route: 065
     Dates: start: 20230719

REACTIONS (6)
  - Pruritus [Unknown]
  - Headache [Unknown]
  - Bone pain [Unknown]
  - Urticaria [Unknown]
  - Rash [Unknown]
  - Stress [Unknown]
